FAERS Safety Report 7403944-1 (Version None)
Quarter: 2011Q2

REPORT INFORMATION
  Report Type: 
  Country: None (occurrence: None)
  Receive Date: 20110408
  Receipt Date: 20110330
  Transmission Date: 20111010
  Serious: Yes (Hospitalization)
  Sender: FDA-Public Use
  Company Number: US-CEPHALON-2011001494

PATIENT
  Sex: Female
  Weight: 49 kg

DRUGS (4)
  1. CYTARABINE [Suspect]
     Indication: ACUTE PROMYELOCYTIC LEUKAEMIA
     Dates: end: 20110311
  2. TRETINOIN [Suspect]
     Indication: ACUTE PROMYELOCYTIC LEUKAEMIA
     Dates: end: 20110317
  3. MITOXANTRONE [Suspect]
     Indication: ACUTE PROMYELOCYTIC LEUKAEMIA
     Dates: end: 20110311
  4. TRISENOX [Suspect]
     Indication: ACUTE PROMYELOCYTIC LEUKAEMIA
     Dates: end: 20110225

REACTIONS (7)
  - DEVICE RELATED INFECTION [None]
  - DEHYDRATION [None]
  - VOMITING [None]
  - HYPOTENSION [None]
  - HEADACHE [None]
  - NAUSEA [None]
  - FEBRILE NEUTROPENIA [None]
